FAERS Safety Report 10158308 (Version 1)
Quarter: 2014Q2

REPORT INFORMATION
  Report Type: Spontaneous
  Country: CN (occurrence: CN)
  Receive Date: 20140507
  Receipt Date: 20140507
  Transmission Date: 20141212
  Serious: Yes (Life-Threatening)
  Sender: FDA-Public Use
  Company Number: CN-ABBVIE-14P-035-1230318-00

PATIENT
  Age: 75 Year
  Sex: Female

DRUGS (1)
  1. DEPAKINE CHRONO [Suspect]
     Indication: EPILEPSY
     Route: 048
     Dates: start: 20130604, end: 20130611

REACTIONS (3)
  - Fatigue [Recovering/Resolving]
  - Aplastic anaemia [Recovering/Resolving]
  - Mobility decreased [Recovering/Resolving]
